FAERS Safety Report 6933896-X (Version None)
Quarter: 2010Q3

REPORT INFORMATION
  Report Type: 
  Country: None (occurrence: None)
  Receive Date: 20100820
  Receipt Date: 20100812
  Transmission Date: 20110219
  Serious: Yes (Other)
  Sender: FDA-Public Use
  Company Number: AU-ROCHE-720508

PATIENT
  Sex: Female

DRUGS (1)
  1. AVASTIN [Suspect]
     Route: 065

REACTIONS (3)
  - ABDOMINAL WALL DISORDER [None]
  - FEMALE GENITAL TRACT FISTULA [None]
  - IMPAIRED HEALING [None]
